FAERS Safety Report 9649365 (Version 4)
Quarter: 2014Q2

REPORT INFORMATION
  Report Type: Report from Study
  Country: DE (occurrence: DE)
  Receive Date: 20131028
  Receipt Date: 20140623
  Transmission Date: 20141212
  Serious: Yes (Other)
  Sender: FDA-Public Use
  Company Number: DE-SA-2013SA106512

PATIENT
  Age: 58 Year
  Sex: Female
  Weight: 89.4 kg

DRUGS (9)
  1. MIPOMERSEN SODIUM [Suspect]
     Indication: HYPERCHOLESTEROLAEMIA
     Route: 058
     Dates: start: 20130719, end: 20131018
  2. SIMVASTATIN [Concomitant]
     Indication: HYPERLIPIDAEMIA
     Route: 048
     Dates: start: 1991
  3. ACETYLSALICYLIC ACID [Concomitant]
     Indication: CORONARY ARTERY DISEASE
     Route: 048
     Dates: start: 1991
  4. PLAVIX [Concomitant]
     Indication: CORONARY ARTERY DISEASE
     Route: 048
     Dates: start: 2005
  5. LORTAB [Concomitant]
     Indication: HYPERTENSION
     Dosage: DOSE: 25/625 MG
     Route: 048
     Dates: start: 2007
  6. PENTALONG [Concomitant]
     Indication: CORONARY ARTERY DISEASE
     Dosage: DOSE: 80/50 MG?80 MG IN MORNING, 50 MG IN EVENING
     Route: 048
     Dates: start: 2008
  7. TEBONIN [Concomitant]
     Indication: TINNITUS
     Dosage: DOSE: 30/50 MG?30 MG IN MORNING AND 50 MG IN NOON
     Route: 048
     Dates: start: 2011
  8. RANITIDINE [Concomitant]
     Route: 048
     Dates: start: 2011
  9. ESTRAGEST [Concomitant]
     Route: 062
     Dates: start: 2007

REACTIONS (1)
  - Hepatic enzyme increased [Recovered/Resolved with Sequelae]
